FAERS Safety Report 24874605 (Version 1)
Quarter: 2025Q1

REPORT INFORMATION
  Report Type: Spontaneous
  Country: US (occurrence: US)
  Receive Date: 20250122
  Receipt Date: 20250122
  Transmission Date: 20250409
  Serious: Yes (Death, Hospitalization, Other)
  Sender: ORGANON
  Company Number: US-ORGANON-O2501USA002223

PATIENT
  Age: 76 Year
  Sex: Female

DRUGS (8)
  1. SINEMET [Suspect]
     Active Substance: CARBIDOPA\LEVODOPA
     Route: 048
  2. ZOCOR [Suspect]
     Active Substance: SIMVASTATIN
     Route: 048
  3. DIPHENHYDRAMINE [Suspect]
     Active Substance: DIPHENHYDRAMINE
     Route: 048
  4. HYDROCHLOROTHIAZIDE [Suspect]
     Active Substance: HYDROCHLOROTHIAZIDE
     Route: 048
  5. SERTRALINE [Suspect]
     Active Substance: SERTRALINE HYDROCHLORIDE
     Route: 048
  6. RASAGILINE [Suspect]
     Active Substance: RASAGILINE
     Route: 048
  7. VITAMIN D NOS [Suspect]
     Active Substance: CHOLECALCIFEROL\ERGOCALCIFEROL
     Route: 048
  8. AMANTADINE [Suspect]
     Active Substance: AMANTADINE
     Route: 048

REACTIONS (1)
  - Suspected suicide [Fatal]
